FAERS Safety Report 6006178-0 (Version None)
Quarter: 2008Q4

REPORT INFORMATION
  Report Type: 
  Country: None (occurrence: None)
  Receive Date: 20081216
  Receipt Date: 20081216
  Transmission Date: 20090506
  Serious: Yes (Other)
  Sender: FDA-Public Use
  Company Number: None

PATIENT
  Age: 51 Year
  Sex: Female
  Weight: 104.3273 kg

DRUGS (1)
  1. LEVAQUIN [Suspect]
     Indication: BRONCHITIS
     Dosage: 500MG ONE TABLET DAILY PO
     Route: 048
     Dates: start: 20081201, end: 20081203

REACTIONS (7)
  - AMNESIA [None]
  - ARTHRALGIA [None]
  - DIZZINESS [None]
  - GAIT DISTURBANCE [None]
  - NAUSEA [None]
  - SOMNOLENCE [None]
  - VOMITING [None]
